FAERS Safety Report 6585694-7 (Version None)
Quarter: 2010Q1

REPORT INFORMATION
  Report Type: 
  Country: None (occurrence: None)
  Receive Date: 20100217
  Receipt Date: 20100208
  Transmission Date: 20100710
  Serious: Yes (Hospitalization)
  Sender: FDA-Public Use
  Company Number: US-ELI_LILLY_AND_COMPANY-US201002003053

PATIENT
  Sex: Female

DRUGS (6)
  1. HUMALOG [Suspect]
     Dosage: 0.45 U, DAILY (1/D)
  2. HUMALOG [Suspect]
     Dosage: 0.5 U, DAILY (1/D)
  3. HUMALOG [Suspect]
     Dosage: 0.6 U, DAILY (1/D)
  4. HUMALOG [Suspect]
     Dosage: UNK, AS NEEDED
  5. NOVOLOG [Concomitant]
  6. INSULIN [Concomitant]

REACTIONS (11)
  - ANGER [None]
  - ANKLE FRACTURE [None]
  - BLOOD GLUCOSE DECREASED [None]
  - BLOOD GLUCOSE INCREASED [None]
  - DRUG ADMINISTRATION ERROR [None]
  - FALL [None]
  - FEMUR FRACTURE [None]
  - HAND FRACTURE [None]
  - IMPAIRED GASTRIC EMPTYING [None]
  - OEDEMA PERIPHERAL [None]
  - PAIN [None]
